FAERS Safety Report 9495799 (Version 2)
Quarter: 2013Q3

REPORT INFORMATION
  Report Type: Spontaneous
  Country: US (occurrence: US)
  Receive Date: 20130903
  Receipt Date: 20130903
  Transmission Date: 20140515
  Serious: Yes (Disabling, Other)
  Sender: FDA-Public Use
  Company Number: US-TEVA-276563USA

PATIENT
  Sex: Female

DRUGS (6)
  1. METOCLOPRAMIDE [Suspect]
     Indication: ABDOMINAL DISTENSION
  2. METOCLOPRAMIDE [Suspect]
     Indication: DYSPEPSIA
  3. METOCLOPRAMIDE [Suspect]
     Indication: IMPAIRED GASTRIC EMPTYING
  4. METOCLOPRAMIDE [Suspect]
     Indication: ABDOMINAL DISTENSION
  5. METOCLOPRAMIDE [Suspect]
     Indication: DYSPEPSIA
  6. METOCLOPRAMIDE [Suspect]
     Indication: IMPAIRED GASTRIC EMPTYING

REACTIONS (14)
  - Tardive dyskinesia [Unknown]
  - Extrapyramidal disorder [Unknown]
  - Nervous system disorder [Unknown]
  - Suicidal ideation [Unknown]
  - Dyskinesia [Unknown]
  - Parkinsonism [Unknown]
  - Dysphonia [Unknown]
  - Dyskinesia [Unknown]
  - General physical health deterioration [Unknown]
  - Sleep disorder [Unknown]
  - Amnesia [Unknown]
  - Anxiety [Unknown]
  - Pain [Unknown]
  - Muscle rigidity [Unknown]
